FAERS Safety Report 8002574-0 (Version None)
Quarter: 2011Q4

REPORT INFORMATION
  Report Type: 
  Country: None (occurrence: None)
  Receive Date: 20111222
  Receipt Date: 20111215
  Transmission Date: 20120403
  Serious: Yes (Other)
  Sender: FDA-Public Use
  Company Number: US-ABBOTT-11P-163-0883480-00

PATIENT
  Sex: Female

DRUGS (2)
  1. HUMIRA [Suspect]
     Indication: CROHN'S DISEASE
     Route: 058
     Dates: start: 20091101
  2. UNKNOWN MEDICATION [Suspect]
     Indication: HEPATITIS C
     Dates: start: 20111101

REACTIONS (5)
  - LABORATORY TEST ABNORMAL [None]
  - PYREXIA [None]
  - FATIGUE [None]
  - HEPATITIS C [None]
  - HEADACHE [None]
